FAERS Safety Report 8531264-0 (Version None)
Quarter: 2012Q3

REPORT INFORMATION
  Report Type: 
  Country: None (occurrence: None)
  Receive Date: 20120711
  Receipt Date: 20120625
  Transmission Date: 20120928
  Serious: Yes (Hospitalization, Other)
  Sender: FDA-Public Use
  Company Number: 2012MA007868

PATIENT
  Age: 13 Year
  Sex: Female

DRUGS (10)
  1. PHENOBARBITAL TAB [Suspect]
     Indication: ENCEPHALITIS
  2. PHENOBARBITAL TAB [Suspect]
     Indication: EPILEPSY
  3. LEVETIRACETAM [Suspect]
     Indication: EPILEPSY
  4. LEVETIRACETAM [Suspect]
     Indication: ENCEPHALITIS
  5. PHENYTOIN [Suspect]
     Indication: EPILEPSY
  6. PHENYTOIN [Suspect]
     Indication: ENCEPHALITIS
  7. PREDNISONE TAB [Suspect]
     Indication: EPILEPSY
     Dosage: 2 MG/KG;QD
  8. PREDNISONE TAB [Suspect]
     Indication: ENCEPHALITIS
     Dosage: 2 MG/KG;QD
  9. IMMUNE GLOBULIN (HUMAN) [Suspect]
     Indication: ENCEPHALITIS
     Dosage: BIW
  10. IMMUNE GLOBULIN (HUMAN) [Suspect]
     Indication: EPILEPSY
     Dosage: BIW

REACTIONS (2)
  - ESCHERICHIA URINARY TRACT INFECTION [None]
  - DRUG RASH WITH EOSINOPHILIA AND SYSTEMIC SYMPTOMS [None]
